FAERS Safety Report 8418948-X (Version None)
Quarter: 2012Q2

REPORT INFORMATION
  Report Type: 
  Country: None (occurrence: None)
  Receive Date: 20120607
  Receipt Date: 20120531
  Transmission Date: 20120825
  Serious: Yes (Other)
  Sender: FDA-Public Use
  Company Number: PHHY2012NL014565

PATIENT
  Sex: Female
  Weight: 56 kg

DRUGS (6)
  1. NEBIVOLOL [Concomitant]
     Indication: HEART RATE INCREASED
  2. RITALIN [Suspect]
     Dosage: 15 MG, QD
     Route: 048
  3. RITALIN [Suspect]
     Route: 048
     Dates: start: 20120217
  4. RITALIN [Suspect]
     Dosage: 40 MG, QD
     Route: 048
  5. RITALIN [Suspect]
     Indication: ATTENTION DEFICIT/HYPERACTIVITY DISORDER
     Dosage: 60 MG, QD
     Route: 048
  6. RITALIN [Suspect]
     Route: 048

REACTIONS (10)
  - DIZZINESS [None]
  - PYREXIA [None]
  - WRONG TECHNIQUE IN DRUG USAGE PROCESS [None]
  - SOMNOLENCE [None]
  - HYPERTENSION [None]
  - HEART RATE INCREASED [None]
  - PALLOR [None]
  - GAIT DISTURBANCE [None]
  - MALAISE [None]
  - HYPERHIDROSIS [None]
